FAERS Safety Report 24427998 (Version 3)
Quarter: 2024Q4

REPORT INFORMATION
  Report Type: Spontaneous
  Country: FR (occurrence: FR)
  Receive Date: 20241011
  Receipt Date: 20241112
  Transmission Date: 20250115
  Serious: Yes (Other)
  Sender: AVERITAS
  Company Number: FR-GRUNENTHAL-2024-125993

PATIENT
  Age: 48 Year
  Sex: Female

DRUGS (11)
  1. QUTENZA [Suspect]
     Active Substance: CAPSAICIN
     Indication: Neuralgia
     Dosage: 2 DOSAGE FORM, ONCE
     Route: 003
     Dates: start: 20240801, end: 20240801
  2. QUTENZA [Suspect]
     Active Substance: CAPSAICIN
     Dosage: 2 DOSAGE FORM, ONCE
     Route: 003
  3. QUTENZA [Suspect]
     Active Substance: CAPSAICIN
     Dosage: 2 DOSAGE FORM, ONCE
     Route: 003
     Dates: start: 20211125, end: 20211125
  4. QUTENZA [Suspect]
     Active Substance: CAPSAICIN
     Dosage: 2 DOSAGE FORM, ONCE
     Route: 003
     Dates: start: 20241003, end: 20241003
  5. KARDEGIC [Concomitant]
     Active Substance: ASPIRIN DL-LYSINE
     Indication: Product used for unknown indication
     Dosage: 75 UNK
     Route: 065
  6. TROSPIUM CHLORIDE [Concomitant]
     Active Substance: TROSPIUM CHLORIDE
     Dosage: 20 MILLIGRAM
     Route: 065
  7. TOVIAZ [Concomitant]
     Active Substance: FESOTERODINE FUMARATE
     Indication: Product used for unknown indication
     Dosage: 8 MILLIGRAM
     Route: 065
  8. DOLIPRANE [Concomitant]
     Active Substance: ACETAMINOPHEN
     Indication: Neuralgia
     Dosage: UNK
     Route: 065
  9. ACETAMINOPHEN\CODEINE PHOSPHATE [Concomitant]
     Active Substance: ACETAMINOPHEN\CODEINE PHOSPHATE
     Indication: Product used for unknown indication
     Dosage: UNK
     Route: 065
  10. PREGABALIN [Concomitant]
     Active Substance: PREGABALIN
     Indication: Product used for unknown indication
     Dosage: UNK
     Route: 065
  11. BETAHISTINE HYDROCHLORIDE [Concomitant]
     Active Substance: BETAHISTINE HYDROCHLORIDE
     Indication: Dizziness
     Dosage: 16 MILLIGRAM
     Route: 065

REACTIONS (4)
  - Application site plaque [Not Recovered/Not Resolved]
  - Application site erythema [Not Recovered/Not Resolved]
  - Application site plaque [Not Recovered/Not Resolved]
  - Application site erythema [Not Recovered/Not Resolved]

NARRATIVE: CASE EVENT DATE: 20240801
